FAERS Safety Report 21721588 (Version 1)
Quarter: 2022Q4

REPORT INFORMATION
  Report Type: Spontaneous
  Country: SE (occurrence: SE)
  Receive Date: 20221213
  Receipt Date: 20221213
  Transmission Date: 20230113
  Serious: Yes (Hospitalization, Other)
  Sender: FDA-Public Use
  Company Number: None

PATIENT
  Age: 21 Year
  Sex: Female

DRUGS (6)
  1. ZOLPIDEM TARTRATE [Suspect]
     Active Substance: ZOLPIDEM TARTRATE
     Dosage: 30 MG, TOTAL
     Route: 048
     Dates: start: 20210404, end: 20210404
  2. TRIMEPRAZINE [Suspect]
     Active Substance: TRIMEPRAZINE
     Dosage: HALF BOTTLE, DOSE: 1
     Route: 048
     Dates: start: 20210404, end: 20210404
  3. DIAZEPAM [Suspect]
     Active Substance: DIAZEPAM
     Dosage: 30 MG, TOTAL
     Route: 048
     Dates: start: 20210404, end: 20210404
  4. PROPIOMAZINE [Suspect]
     Active Substance: PROPIOMAZINE
     Dosage: 100 MG, TOTAL
     Route: 048
     Dates: start: 20210404, end: 20210404
  5. LEVOMEPROMAZINE [Suspect]
     Active Substance: LEVOMEPROMAZINE
     Dosage: 100 MG, TOTAL
     Route: 048
     Dates: start: 20210404, end: 20210404
  6. LISDEXAMFETAMINE DIMESYLATE [Suspect]
     Active Substance: LISDEXAMFETAMINE DIMESYLATE
     Dosage: 3 CAPSULES OF ELVANSE, UNCLEAR STRENGTH
     Route: 048
     Dates: start: 20210404, end: 20210404

REACTIONS (2)
  - Intentional self-injury [Unknown]
  - Intentional overdose [Unknown]

NARRATIVE: CASE EVENT DATE: 20210404
